FAERS Safety Report 7496898-3 (Version None)
Quarter: 2011Q2

REPORT INFORMATION
  Report Type: 
  Country: None (occurrence: None)
  Receive Date: 20110516
  Receipt Date: 20110502
  Transmission Date: 20111010
  Serious: Yes (Hospitalization)
  Sender: FDA-Public Use
  Company Number: FR-1186100

PATIENT
  Age: 83 Year
  Sex: Male

DRUGS (8)
  1. TOBRADEX [Suspect]
     Dosage: OPHTHALMIC
     Route: 047
     Dates: start: 20110330, end: 20110414
  2. MOVICOL (MOVICOL) [Concomitant]
  3. INDOMETHACIN [Suspect]
     Dosage: OPHTHALMIC
     Route: 047
     Dates: start: 20110330, end: 20110414
  4. ALPHAGAN (ALPHAGAN) [Concomitant]
  5. AZPOT (AZPOT) [Concomitant]
  6. IDEOS (IDEOS) [Concomitant]
  7. INEXIUM TABLETS (INEXIUM) (ASTRAZENECA) [Suspect]
     Dosage: 40 MG ORAL
     Route: 048
  8. ASPEGIC (ASGEGIC) [Concomitant]

REACTIONS (5)
  - CEREBROVASCULAR ACCIDENT [None]
  - HAEMOGLOBIN DECREASED [None]
  - AGRANULOCYTOSIS [None]
  - PLATELET COUNT DECREASED [None]
  - NEUTROPENIA [None]
